FAERS Safety Report 7912066-2 (Version None)
Quarter: 2011Q4

REPORT INFORMATION
  Report Type: 
  Country: None (occurrence: None)
  Receive Date: 20111114
  Receipt Date: 20111109
  Transmission Date: 20120403
  Serious: Yes (Death, Life-Threatening, Hospitalization, Disabling, Other)
  Sender: FDA-Public Use
  Company Number: BE-ASTRAZENECA-2011SE53055

PATIENT
  Age: 27921 Day
  Sex: Male

DRUGS (12)
  1. CRESTOR [Concomitant]
     Indication: HYPERCHOLESTEROLAEMIA
     Route: 048
     Dates: end: 20110901
  2. ASPIRIN [Concomitant]
     Indication: CORONARY ARTERY DISEASE
     Route: 048
  3. ZANTAC [Concomitant]
     Indication: PROPHYLAXIS AGAINST GASTROINTESTINAL ULCER
     Route: 042
     Dates: start: 20110901, end: 20110907
  4. TICAGRELOR [Suspect]
     Indication: CORONARY ARTERY DISEASE
     Route: 048
     Dates: start: 20110808, end: 20110831
  5. ATACAND HCT [Concomitant]
     Indication: HYPERTENSION
     Route: 048
     Dates: end: 20110901
  6. BISOPROLOL [Concomitant]
     Indication: CARDIOVASCULAR DISORDER
     Route: 048
     Dates: end: 20110901
  7. BISOPROLOL [Concomitant]
     Route: 050
     Dates: start: 20110908
  8. VASEXTEN [Concomitant]
     Indication: HYPERTENSION
     Route: 048
     Dates: end: 20110901
  9. TAMSULOSIN HCL [Concomitant]
     Indication: BENIGN PROSTATIC HYPERPLASIA
     Route: 048
     Dates: end: 20110901
  10. OMEPRAZOLE [Concomitant]
     Indication: GASTRIC ULCER
     Route: 048
     Dates: end: 20110901
  11. PERFUSALGAN [Concomitant]
     Indication: ANALGESIC THERAPY
     Route: 042
     Dates: start: 20110901, end: 20110906
  12. ZANTAC [Concomitant]
     Route: 050
     Dates: start: 20110908, end: 20110925

REACTIONS (1)
  - HAEMORRHAGE INTRACRANIAL [None]
